FAERS Safety Report 7822657-5 (Version None)
Quarter: 2011Q4

REPORT INFORMATION
  Report Type: 
  Country: None (occurrence: None)
  Receive Date: 20111018
  Receipt Date: 20111003
  Transmission Date: 20120403
  Serious: Yes (Other)
  Sender: FDA-Public Use
  Company Number: US-ROCHE-1002028

PATIENT
  Age: 67 Year
  Sex: Female
  Weight: 93 kg

DRUGS (15)
  1. WARFARIN SODIUM [Interacting]
     Indication: ANTICOAGULANT THERAPY
     Dates: start: 20020101
  2. GEMFIBROZIL [Concomitant]
  3. LEVOTHYROXINE SODIUM [Concomitant]
  4. METOCLOPRAMIDE [Concomitant]
     Dosage: IF NEEDED
  5. SOTALOL HYDROCHLORIDE [Concomitant]
  6. CEFTRIAXONE [Suspect]
     Indication: URINARY TRACT INFECTION
     Route: 030
  7. CEFTRIAXONE [Interacting]
     Route: 030
  8. ALBUTEROL [Concomitant]
     Route: 048
  9. FUROSEMIDE [Concomitant]
  10. OMEPRAZOLE [Concomitant]
  11. SIMVASTATIN [Concomitant]
  12. METFORMIN HCL [Concomitant]
  13. PIOGLITAZONE [Concomitant]
  14. CITALOPRAM [Concomitant]
  15. POTASSIUM CHLORIDE [Concomitant]

REACTIONS (2)
  - DRUG INTERACTION [None]
  - INTERNATIONAL NORMALISED RATIO INCREASED [None]
